FAERS Safety Report 23550602 (Version 2)
Quarter: 2024Q1

REPORT INFORMATION
  Report Type: Other
  Country: US (occurrence: US)
  Receive Date: 20240221
  Receipt Date: 20240312
  Transmission Date: 20240410
  Serious: Yes (Other)
  Sender: FDA-Public Use
  Company Number: US-PRESTIGE-202402-US-000273

PATIENT
  Age: 44 Year
  Sex: Male

DRUGS (3)
  1. DEXTROMETHORPHAN HYDROBROMIDE [Suspect]
     Active Substance: DEXTROMETHORPHAN HYDROBROMIDE
     Indication: Chronic sinusitis
     Dosage: UP TO 1422MG/DAY
     Route: 048
  2. DEXTROMETHORPHAN HYDROBROMIDE [Suspect]
     Active Substance: DEXTROMETHORPHAN HYDROBROMIDE
  3. LEVETIRACETAM [Concomitant]
     Active Substance: LEVETIRACETAM
     Dosage: 1500 MG BID

REACTIONS (4)
  - Euphoric mood [Recovered/Resolved]
  - Substance-induced mood disorder [Recovered/Resolved]
  - Depersonalisation/derealisation disorder [Recovered/Resolved]
  - Drug abuse [Recovered/Resolved]
